FAERS Safety Report 13448724 (Version 1)
Quarter: 2017Q2

REPORT INFORMATION
  Report Type: Spontaneous
  Country: JP (occurrence: JP)
  Receive Date: 20170417
  Receipt Date: 20170417
  Transmission Date: 20170830
  Serious: Yes (Other)
  Sender: FDA-Public Use
  Company Number: JP-BAYER-2016-228386

PATIENT
  Age: 9 Year
  Sex: Male

DRUGS (7)
  1. WARFARIN POTASSIUM [Suspect]
     Active Substance: WARFARIN POTASSIUM
     Indication: ANTICOAGULANT THERAPY
     Dosage: 0.016 MG/KG, QD
  2. IMMUNOGLOBULIN (IVIG) [Suspect]
     Active Substance: HUMAN IMMUNOGLOBULIN G
     Dosage: 2 UNK, UNK 2 G/KG/DOSE
  3. BAYASPIRIN 100 MG [Suspect]
     Active Substance: ASPIRIN
     Dosage: 30 MG/KG, QD
     Route: 048
     Dates: start: 20160808
  4. PREDONINE [Suspect]
     Active Substance: PREDNISOLONE
     Indication: KAWASAKI^S DISEASE
     Dosage: 2 MG/KG, QD
     Route: 042
  5. H2 BLOCKER [Concomitant]
     Indication: PROPHYLAXIS AGAINST GASTROINTESTINAL ULCER
  6. TICLOPIDINE HYDROCHLORIDE. [Suspect]
     Active Substance: TICLOPIDINE HYDROCHLORIDE
     Indication: ANTICOAGULANT THERAPY
     Dosage: 6 MG/KG, QD
     Route: 048
  7. WARFARIN POTASSIUM [Suspect]
     Active Substance: WARFARIN POTASSIUM
     Indication: ANTICOAGULANT THERAPY
     Dosage: 0.1 MG/KG, QD
     Route: 048

REACTIONS (8)
  - Melaena [None]
  - Abdominal pain [None]
  - Haematemesis [None]
  - Drug administration error [Recovered/Resolved]
  - Coronary artery aneurysm [None]
  - Upper gastrointestinal haemorrhage [Recovered/Resolved]
  - Labelled drug-drug interaction medication error [Recovered/Resolved]
  - Vomiting [None]

NARRATIVE: CASE EVENT DATE: 20160813
